FAERS Safety Report 9305171 (Version 5)
Quarter: 2013Q3

REPORT INFORMATION
  Report Type: Spontaneous
  Country: GB (occurrence: GB)
  Receive Date: 20130523
  Receipt Date: 20130708
  Transmission Date: 20140515
  Serious: Yes (Death, Other)
  Sender: FDA-Public Use
  Company Number: PHFR2013GB002974

PATIENT
  Sex: Male

DRUGS (3)
  1. CLOZARIL [Suspect]
     Indication: SCHIZOPHRENIA
     Dosage: UNK
     Route: 048
     Dates: start: 20120412
  2. ROTIGOTINE [Concomitant]
     Indication: PARKINSON^S DISEASE
     Dosage: 8 MG, DAILY
  3. STALEVO [Concomitant]
     Indication: PARKINSON^S DISEASE
     Dosage: UNK
     Route: 048

REACTIONS (2)
  - Parkinson^s disease [Fatal]
  - Dementia with Lewy bodies [Fatal]
